FAERS Safety Report 16886514 (Version 1)
Quarter: 2019Q4

REPORT INFORMATION
  Report Type: Spontaneous
  Country: CA (occurrence: CA)
  Receive Date: 20191004
  Receipt Date: 20191004
  Transmission Date: 20200122
  Serious: Yes (Death)
  Sender: FDA-Public Use
  Company Number: CA-TEVA-2019-CA-1115531

PATIENT
  Age: 52 Year
  Sex: Male

DRUGS (13)
  1. BISOPROLOL [Suspect]
     Active Substance: BISOPROLOL
     Indication: PRODUCT USED FOR UNKNOWN INDICATION
     Route: 065
  2. RAMIPRIL. [Concomitant]
     Active Substance: RAMIPRIL
  3. METFORMIN [Concomitant]
     Active Substance: METFORMIN HYDROCHLORIDE
  4. BETAMETHASONE VALERATE. [Concomitant]
     Active Substance: BETAMETHASONE VALERATE
  5. LIPITOR [Concomitant]
     Active Substance: ATORVASTATIN CALCIUM
  6. COSENTYX [Suspect]
     Active Substance: SECUKINUMAB
     Indication: PSORIASIS
     Route: 058
  7. ASPIRIN. [Concomitant]
     Active Substance: ASPIRIN
  8. BRILINTA [Concomitant]
     Active Substance: TICAGRELOR
  9. CLOTRIMAZOLE. [Concomitant]
     Active Substance: CLOTRIMAZOLE
  10. VALPROIC ACID. [Concomitant]
     Active Substance: VALPROIC ACID
  11. COSENTYX [Suspect]
     Active Substance: SECUKINUMAB
     Route: 058
  12. HYDROCORTISONE. [Concomitant]
     Active Substance: HYDROCORTISONE
  13. METHOTREXATE. [Concomitant]
     Active Substance: METHOTREXATE

REACTIONS (1)
  - Myocardial infarction [Fatal]
